FAERS Safety Report 24202446 (Version 1)
Quarter: 2024Q3

REPORT INFORMATION
  Report Type: Spontaneous
  Country: IT (occurrence: IT)
  Receive Date: 20240813
  Receipt Date: 20240813
  Transmission Date: 20241016
  Serious: Yes (Hospitalization)
  Sender: CHEPLAPHARM
  Company Number: IT-CHEPLA-2024010315

PATIENT
  Age: 39 Year
  Sex: Male

DRUGS (26)
  1. VALGANCICLOVIR [Suspect]
     Active Substance: VALGANCICLOVIR
     Indication: Cytomegalovirus infection
     Route: 048
  2. URSODIOL [Suspect]
     Active Substance: URSODIOL
     Dosage: 300MG TID
  3. AMPHOTERICIN B [Suspect]
     Active Substance: AMPHOTERICIN B
     Dosage: 3 MG/KG
  4. METHYLPREDNISOLONE [Suspect]
     Active Substance: METHYLPREDNISOLONE
     Indication: Porcelain gallbladder
     Route: 042
     Dates: start: 2022
  5. METHYLPREDNISOLONE [Suspect]
     Active Substance: METHYLPREDNISOLONE
     Indication: Porcelain gallbladder
     Dates: start: 2023
  6. METHYLPREDNISOLONE [Suspect]
     Active Substance: METHYLPREDNISOLONE
     Indication: Porcelain gallbladder
  7. NIVOLUMAB [Suspect]
     Active Substance: NIVOLUMAB
     Indication: Intestinal metastasis
     Dosage: MAINTANANCE THERAPY, 480MG EVERY 4 WEEKS
     Dates: start: 202210
  8. NIVOLUMAB [Suspect]
     Active Substance: NIVOLUMAB
     Indication: Malignant melanoma stage III
     Dosage: MAINTANANCE THERAPY, 480MG EVERY 4 WEEKS
     Dates: start: 202210
  9. NIVOLUMAB [Suspect]
     Active Substance: NIVOLUMAB
     Indication: Metastases to lymph nodes
     Dosage: MAINTANANCE THERAPY, 480MG EVERY 4 WEEKS
     Dates: start: 202210
  10. NIVOLUMAB [Suspect]
     Active Substance: NIVOLUMAB
     Indication: Intestinal metastasis
  11. NIVOLUMAB [Suspect]
     Active Substance: NIVOLUMAB
     Indication: Malignant melanoma stage III
  12. NIVOLUMAB [Suspect]
     Active Substance: NIVOLUMAB
     Indication: Metastases to lymph nodes
  13. MYCOPHENOLATE MOFETIL [Suspect]
     Active Substance: MYCOPHENOLATE MOFETIL
     Dosage: 500 MG BID
  14. SULFAMETHOXAZOLE\TRIMETHOPRIM [Suspect]
     Active Substance: SULFAMETHOXAZOLE\TRIMETHOPRIM
  15. CANRENONE [Suspect]
     Active Substance: CANRENONE
     Dosage: 100MG BID
  16. CEFTAZIDIME [Suspect]
     Active Substance: CEFTAZIDIME
     Dosage: 2G QD
  17. CEFTAZIDIME [Suspect]
     Active Substance: CEFTAZIDIME
  18. ACYCLOVIR [Suspect]
     Active Substance: ACYCLOVIR
     Dosage: 750MG TID
  19. ENOXAPARIN [Suspect]
     Active Substance: ENOXAPARIN
  20. DABRAFENIB [Suspect]
     Active Substance: DABRAFENIB
  21. TRAMETINIB [Suspect]
     Active Substance: TRAMETINIB
  22. LEVOTHYROXINE [Concomitant]
     Active Substance: LEVOTHYROXINE\LEVOTHYROXINE SODIUM
     Indication: Hypothyroidism
  23. EDOXABAN [Concomitant]
     Active Substance: EDOXABAN
     Indication: Superficial vein thrombosis
  24. FUROSEMIDE [Concomitant]
     Active Substance: FUROSEMIDE
     Dates: start: 2022
  25. FUROSEMIDE [Concomitant]
     Active Substance: FUROSEMIDE
     Dates: start: 2023
  26. PREDNISONE [Concomitant]
     Active Substance: PREDNISONE
     Route: 048

REACTIONS (9)
  - Pseudomonas test positive [Unknown]
  - Diplopia [Unknown]
  - Hypoacusis [Unknown]
  - Urinary retention [Unknown]
  - Varicella virus test positive [Unknown]
  - Disease recurrence [Unknown]
  - Hypotension [Unknown]
  - Anaemia [Unknown]
  - Nervous system disorder [Unknown]
